FAERS Safety Report 4363715-X (Version None)
Quarter: 2004Q2

REPORT INFORMATION
  Report Type: 
  Country: None (occurrence: None)
  Receive Date: 20040521
  Receipt Date: 20040521
  Transmission Date: 20050107
  Serious: Yes (Life-Threatening, Hospitalization)
  Sender: FDA-Public Use
  Company Number: None

PATIENT
  Age: 75 Year
  Sex: Female
  Weight: 68.5 kg

DRUGS (1)
  1. CYCLOPHOSPHAMIDE [Suspect]
     Indication: WEGENER'S GRANULOMATOSIS
     Dosage: ORAL
     Route: 048
     Dates: start: 19931101, end: 20031125

REACTIONS (5)
  - BONE DISORDER [None]
  - CYSTITIS HAEMORRHAGIC [None]
  - IMPAIRED HEALING [None]
  - RENAL FAILURE ACUTE [None]
  - ULCER [None]
